FAERS Safety Report 12905204 (Version 2)
Quarter: 2017Q1

REPORT INFORMATION
  Report Type: Spontaneous
  Country: US (occurrence: US)
  Receive Date: 20161102
  Receipt Date: 20170201
  Transmission Date: 20170428
  Serious: Yes (Hospitalization, Other)
  Sender: FDA-Public Use
  Company Number: US-BAXTER-2016BAX053474

PATIENT
  Sex: Female

DRUGS (1)
  1. DIANEAL LOW CALCIUM PERITONEAL DIALYSIS SOLUTION WITH DEXTROSE [Suspect]
     Active Substance: CALCIUM CHLORIDE\DEXTROSE\MAGNESIUM CHLORIDE\SODIUM CHLORIDE\SODIUM LACTATE
     Indication: PERITONEAL DIALYSIS
     Route: 033

REACTIONS (8)
  - Back pain [Unknown]
  - Fall [Unknown]
  - Pneumonia [Unknown]
  - Thyroid mass [Unknown]
  - Fluid retention [Unknown]
  - Gastritis [Unknown]
  - Malaise [Unknown]
  - Blindness [Unknown]

NARRATIVE: CASE EVENT DATE: 20161017
